FAERS Safety Report 4851061-7 (Version None)
Quarter: 2005Q4

REPORT INFORMATION
  Report Type: 
  Country: None (occurrence: None)
  Receive Date: 20051212
  Receipt Date: 20051201
  Transmission Date: 20060501
  Serious: Yes (Death)
  Sender: FDA-Public Use
  Company Number: JP-JNJFOC-20051003750

PATIENT
  Sex: Male

DRUGS (11)
  1. DUROTEP [Suspect]
     Indication: CANCER PAIN
     Route: 062
     Dates: start: 20051017, end: 20051023
  2. OXYCODONE HCL [Concomitant]
     Route: 048
  3. OXYCODONE HCL [Concomitant]
     Route: 048
  4. SENNOSIDE [Concomitant]
     Indication: CONSTIPATION
     Dosage: 2 DOSAGE FORM/DAY
     Route: 048
     Dates: end: 20051020
  5. NIFEDIPINE [Concomitant]
  6. FAMOTIDINE [Concomitant]
     Route: 048
  7. VALSARTAN [Concomitant]
  8. BISOPROLOL FUMARATE [Concomitant]
  9. TIAPRIDE HYDROCHLORIDE [Concomitant]
  10. BROTIZOLAM [Concomitant]
  11. DICLOFENAC SODIUM [Concomitant]

REACTIONS (4)
  - APNOEA [None]
  - OXYGEN SATURATION DECREASED [None]
  - RESPIRATORY DEPRESSION [None]
  - RESPIRATORY FAILURE [None]
